FAERS Safety Report 22630817 (Version 1)
Quarter: 2023Q2

REPORT INFORMATION
  Report Type: Spontaneous
  Country: US (occurrence: US)
  Receive Date: 20230622
  Receipt Date: 20230622
  Transmission Date: 20230721
  Serious: Yes (Hospitalization)
  Sender: FDA-Public Use
  Company Number: US-BIOGEN-2023BI01211976

PATIENT
  Age: 7 Year
  Sex: Male
  Weight: 27.6 kg

DRUGS (1)
  1. SPINRAZA [Suspect]
     Active Substance: NUSINERSEN
     Indication: Spinal muscular atrophy
     Route: 050
     Dates: start: 20170925

REACTIONS (1)
  - Feeding intolerance [Not Recovered/Not Resolved]

NARRATIVE: CASE EVENT DATE: 20220926
